FAERS Safety Report 7361048-0 (Version None)
Quarter: 2011Q1

REPORT INFORMATION
  Report Type: 
  Country: None (occurrence: None)
  Receive Date: 20110318
  Receipt Date: 20110307
  Transmission Date: 20110831
  Serious: Yes (Hospitalization)
  Sender: FDA-Public Use
  Company Number: IT-BAYER-2011-017197

PATIENT
  Sex: Female

DRUGS (4)
  1. MOMENDOL [Suspect]
     Indication: WRIST FRACTURE
     Dosage: DAILY DOSE 1100 MG
     Route: 048
     Dates: start: 20110219, end: 20110219
  2. MUSCORIL [Suspect]
     Indication: WRIST FRACTURE
     Dosage: DAILY DOSE 24 MG
     Route: 048
     Dates: start: 20110219, end: 20110219
  3. IBRUPROFEN [Suspect]
     Indication: WRIST FRACTURE
     Dosage: DAILY DOSE 4000 MG
     Route: 048
     Dates: start: 20110219, end: 20110219
  4. SANIPIRINA [Suspect]
     Indication: WRIST FRACTURE
     Dosage: DAILY DOSE 2500 MG
     Route: 048
     Dates: start: 20110219, end: 20110219

REACTIONS (2)
  - DYSPEPSIA [None]
  - NAUSEA [None]
